FAERS Safety Report 6832509-5 (Version None)
Quarter: 2010Q3

REPORT INFORMATION
  Report Type: 
  Country: None (occurrence: None)
  Receive Date: 20100712
  Receipt Date: 20070313
  Transmission Date: 20110219
  Serious: No
  Sender: FDA-Public Use
  Company Number: US-PFIZER INC-2007020790

PATIENT
  Sex: Female
  Weight: 58.97 kg

DRUGS (10)
  1. CHANTIX [Suspect]
     Indication: SMOKING CESSATION THERAPY
     Dates: start: 20070306, end: 20070309
  2. BUSPAR [Concomitant]
  3. OXAZEPAM [Concomitant]
  4. PROPRANOLOL [Concomitant]
  5. LEVOXYL [Concomitant]
  6. ADVAIR DISKUS 100/50 [Concomitant]
  7. ZYRTEC [Concomitant]
  8. METOCLOPRAMIDE [Concomitant]
  9. ACETAMINOPHEN AND HYDROCODONE BITARTRATE [Concomitant]
  10. MIRTAZAPINE [Concomitant]

REACTIONS (6)
  - DISTURBANCE IN ATTENTION [None]
  - FEELING ABNORMAL [None]
  - INSOMNIA [None]
  - MENTAL DISORDER [None]
  - NERVOUSNESS [None]
  - THINKING ABNORMAL [None]
